FAERS Safety Report 6178286-5 (Version None)
Quarter: 2009Q2

REPORT INFORMATION
  Report Type: 
  Country: None (occurrence: None)
  Receive Date: 20090504
  Receipt Date: 20090421
  Transmission Date: 20091009
  Serious: Yes (Other)
  Sender: FDA-Public Use
  Company Number: B0572582A

PATIENT
  Age: 63 Year

DRUGS (6)
  1. CLENIL MODULITE [Suspect]
     Indication: ASTHMA
     Dosage: 250MCG PER DAY
     Route: 055
     Dates: start: 20090209, end: 20090216
  2. PHENYTOIN [Concomitant]
  3. ESTRADERM [Concomitant]
     Dates: start: 20071001
  4. NEOCLARITYN [Concomitant]
     Indication: SEASONAL ALLERGY
     Route: 048
     Dates: start: 20070701
  5. VALSARTAN [Concomitant]
     Indication: BLOOD PRESSURE INCREASED
     Route: 048
  6. PHENYTOIN SODIUM CAP [Concomitant]
     Indication: EPILEPSY
     Route: 048

REACTIONS (2)
  - EPILEPTIC AURA [None]
  - MALAISE [None]
